FAERS Safety Report 11156152 (Version 1)
Quarter: 2015Q2

REPORT INFORMATION
  Report Type: Spontaneous
  Country: FR (occurrence: FR)
  Receive Date: 20150602
  Receipt Date: 20150602
  Transmission Date: 20150821
  Serious: Yes (Hospitalization)
  Sender: FDA-Public Use
  Company Number: FR-SA-2015SA072552

PATIENT
  Age: 49 Year
  Sex: Male

DRUGS (16)
  1. PRIMPERAN [Suspect]
     Active Substance: METOCLOPRAMIDE HYDROCHLORIDE
     Indication: NAUSEA
     Dosage: ROUTE: PRT
  2. FLAGYL [Suspect]
     Active Substance: METRONIDAZOLE\METRONIDAZOLE HYDROCHLORIDE
     Route: 048
     Dates: start: 20090615, end: 20090625
  3. TRIFLUCAN [Suspect]
     Active Substance: FLUCONAZOLE
     Indication: MUCOSAL INFLAMMATION
     Route: 048
     Dates: start: 20090613, end: 20090616
  4. VELCADE [Suspect]
     Active Substance: BORTEZOMIB
     Route: 042
     Dates: start: 20080715, end: 20090531
  5. LOXEN [Suspect]
     Active Substance: NICARDIPINE HYDROCHLORIDE
     Indication: HYPERTENSION
     Route: 048
  6. PENTACARINAT [Suspect]
     Active Substance: PENTAMIDINE ISETHIONATE
     Dosage: STRENGTH: 300 MG ?FORM: POWDER FOR AEROSOL AND FOR PARENTERAL USE
     Route: 055
     Dates: start: 20090603, end: 20090603
  7. VANCOMYCIN [Suspect]
     Active Substance: VANCOMYCIN
     Route: 042
     Dates: start: 20090611, end: 20090625
  8. METHOTREXATE (METHOTREXATE SODIUM) [Suspect]
     Active Substance: METHOTREXATE SODIUM
     Route: 042
     Dates: start: 20090604, end: 20090609
  9. PRIMPERAN [Suspect]
     Active Substance: METOCLOPRAMIDE HYDROCHLORIDE
     Indication: VOMITING
     Dosage: ROUTE: PRT
  10. ALKERAN [Suspect]
     Active Substance: MELPHALAN
     Dosage: FORM: LYPHOLYSATE AND SOLUTION FOR PARENTERAL USE?SINGLE DOSE
     Route: 042
     Dates: start: 20090601, end: 20090601
  11. MORPHINE [Suspect]
     Active Substance: MORPHINE
     Route: 042
     Dates: start: 20090610
  12. TAZOCILLINE [Suspect]
     Active Substance: PIPERACILLIN SODIUM\TAZOBACTAM SODIUM
     Dosage: FORM: POWDER FOR SOLUTION FOR PERFUSION
     Route: 042
     Dates: start: 20090613, end: 20090625
  13. FLUDARABINE PHOSPHATE. [Suspect]
     Active Substance: FLUDARABINE PHOSPHATE
     Route: 042
     Dates: start: 20090529, end: 20090531
  14. NOXAFIL [Suspect]
     Active Substance: POSACONAZOLE
     Indication: PROPHYLAXIS
     Route: 048
     Dates: start: 20090617, end: 20090630
  15. AMBISOME [Suspect]
     Active Substance: AMPHOTERICIN B
     Dosage: FORM: POWDER FOR LIPOSOME SUSPENSION FOR PERFUSION
     Route: 042
     Dates: start: 20090616, end: 20090616
  16. CAELYX [Concomitant]
     Active Substance: DOXORUBICIN HYDROCHLORIDE

REACTIONS (1)
  - Liver injury [Recovering/Resolving]

NARRATIVE: CASE EVENT DATE: 20090625
